FAERS Safety Report 7823379-7 (Version None)
Quarter: 2011Q4

REPORT INFORMATION
  Report Type: 
  Country: None (occurrence: None)
  Receive Date: 20111019
  Receipt Date: 20111014
  Transmission Date: 20120403
  Serious: Yes (Hospitalization)
  Sender: FDA-Public Use
  Company Number: NL-AMGEN-NLDSP2011046210

PATIENT
  Age: 50 Year
  Sex: Female

DRUGS (9)
  1. NEULASTA [Suspect]
     Indication: CHEMOTHERAPY
     Dosage: UNK
  2. TEMAZEPAM [Concomitant]
     Dosage: 10 MG, UNK
     Dates: start: 20110830, end: 20110831
  3. DOCETAXEL [Suspect]
     Indication: BREAST CANCER
     Dosage: 120 MG, UNK
     Dates: start: 20110718, end: 20110808
  4. CYCLOPHOSPHAMIDE [Suspect]
     Indication: BREAST CANCER
     Dosage: 780 MG, UNK
     Route: 042
     Dates: start: 20110718, end: 20110808
  5. ACETAMINOPHEN [Concomitant]
     Dosage: 1000 MG, UNK
     Dates: start: 20110829
  6. MOVICOLON [Concomitant]
     Dosage: UNK
     Dates: start: 20110830
  7. DOXORUBICIN HCL [Suspect]
     Indication: BREAST CANCER
     Dosage: 78 MG, UNK
     Route: 042
     Dates: start: 20110718, end: 20110808
  8. MAGNESIUM OXIDE [Concomitant]
     Dosage: 500 MG, UNK
     Dates: start: 20110829
  9. LEVOTHYROXINE SODIUM [Concomitant]
     Dosage: 25 MUG, UNK
     Dates: start: 20110829

REACTIONS (1)
  - ANAL ABSCESS [None]
